FAERS Safety Report 5259903-0 (Version None)
Quarter: 2007Q1

REPORT INFORMATION
  Report Type: 
  Country: None (occurrence: None)
  Receive Date: 20070309
  Receipt Date: 20070301
  Transmission Date: 20070707
  Serious: Yes (Other)
  Sender: FDA-Public Use
  Company Number: DE-ROCHE-484018

PATIENT
  Age: 63 Year
  Sex: Female
  Weight: 85 kg

DRUGS (2)
  1. ANEXATE TAB [Suspect]
     Indication: REVERSAL OF SEDATION
     Route: 042
     Dates: start: 20070208, end: 20070208
  2. DORMICUM [Concomitant]
     Indication: COLONOSCOPY
     Route: 065
     Dates: start: 20070208, end: 20070208

REACTIONS (5)
  - APHONIA [None]
  - BURNING SENSATION [None]
  - ODYNOPHAGIA [None]
  - OTITIS MEDIA [None]
  - THROAT IRRITATION [None]
